FAERS Safety Report 25230066 (Version 1)
Quarter: 2025Q2

REPORT INFORMATION
  Report Type: Spontaneous
  Country: US (occurrence: None)
  Receive Date: 20250422
  Receipt Date: 20250422
  Transmission Date: 20250717
  Serious: Yes (Other)
  Sender: FDA-CTU
  Company Number: None

PATIENT
  Age: 64 Year
  Sex: Female

DRUGS (1)
  1. ENBREL [Suspect]
     Active Substance: ETANERCEPT
     Dates: start: 20240307, end: 20250422

REACTIONS (3)
  - Drug ineffective [None]
  - Dizziness [None]
  - Therapy interrupted [None]

NARRATIVE: CASE EVENT DATE: 20250422
